FAERS Safety Report 7562152-4 (Version None)
Quarter: 2011Q2

REPORT INFORMATION
  Report Type: 
  Country: None (occurrence: None)
  Receive Date: 20110614
  Receipt Date: 20110531
  Transmission Date: 20111010
  Serious: Yes (Other)
  Sender: FDA-Public Use
  Company Number: 2011MA006579

PATIENT
  Age: 72 Year
  Sex: Male

DRUGS (2)
  1. LIDOCAINE [Suspect]
     Indication: LACRIMATION INCREASED
     Dosage: 2ML, 1X, INJ
     Route: 011
  2. 0.5% BUVIPACAINE [Concomitant]

REACTIONS (10)
  - CONJUNCTIVAL HAEMORRHAGE [None]
  - CORNEAL OPACITY [None]
  - WRONG TECHNIQUE IN DRUG USAGE PROCESS [None]
  - CORNEAL EPITHELIUM DEFECT [None]
  - OCULAR TOXICITY [None]
  - TOXICITY TO VARIOUS AGENTS [None]
  - BLINDNESS [None]
  - ECCHYMOSIS [None]
  - CORNEAL OEDEMA [None]
  - INJECTION SITE PAIN [None]
